FAERS Safety Report 9059288 (Version 1)
Quarter: 2013Q1

REPORT INFORMATION
  Report Type: Spontaneous
  Country: IT (occurrence: IT)
  Receive Date: 20130211
  Receipt Date: 20130211
  Transmission Date: 20140127
  Serious: Yes (Hospitalization)
  Sender: FDA-Public Use
  Company Number: PHHY2013IT012839

PATIENT
  Sex: Female

DRUGS (3)
  1. VOLTAREN [Suspect]
     Indication: BACK PAIN
     Dosage: 1 DF, UNK
     Route: 030
     Dates: start: 20110112, end: 20110112
  2. OMEPRAZOLE [Concomitant]
     Dosage: 1 DF, UNK
     Route: 048
  3. NEO FURADANTIN [Concomitant]
     Dosage: 1 DF, 50 MG
     Route: 048
     Dates: start: 20110105

REACTIONS (5)
  - Feeling hot [Recovering/Resolving]
  - Hyperhidrosis [Recovering/Resolving]
  - Paraesthesia [Recovering/Resolving]
  - Abdominal pain [Recovering/Resolving]
  - Vomiting [Recovering/Resolving]
